FAERS Safety Report 5395311-X (Version None)
Quarter: 2007Q3

REPORT INFORMATION
  Report Type: 
  Country: None (occurrence: None)
  Receive Date: 20070724
  Receipt Date: 20070712
  Transmission Date: 20080115
  Serious: Yes (Hospitalization)
  Sender: FDA-Public Use
  Company Number: US-JNJFOC-20070703342

PATIENT
  Sex: Female
  Weight: 72.58 kg

DRUGS (7)
  1. DURAGESIC-100 [Suspect]
     Indication: COMPLEX REGIONAL PAIN SYNDROME
     Route: 062
  2. TOPAMAX [Suspect]
     Indication: DRUG USE FOR UNKNOWN INDICATION
     Route: 048
  3. NEXIUM [Concomitant]
     Indication: DRUG USE FOR UNKNOWN INDICATION
     Route: 048
  4. HYDROMORPHONE HCL [Concomitant]
     Indication: PAIN
     Route: 048
  5. ZOLOFT [Concomitant]
     Indication: DEPRESSION
     Route: 048
  6. ALPRAZOLAM [Concomitant]
     Indication: DRUG USE FOR UNKNOWN INDICATION
     Route: 048
  7. TEMAZEPAM [Concomitant]
     Indication: SLEEP DISORDER
     Route: 048

REACTIONS (7)
  - BODY HEIGHT DECREASED [None]
  - CHEILITIS [None]
  - CHRONIC OBSTRUCTIVE PULMONARY DISEASE [None]
  - COMPLEX REGIONAL PAIN SYNDROME [None]
  - CONVULSION [None]
  - CYSTITIS INTERSTITIAL [None]
  - MUSCULAR WEAKNESS [None]
